FAERS Safety Report 10028621 (Version 2)
Quarter: 2014Q2

REPORT INFORMATION
  Report Type: Report from Study
  Country: US (occurrence: US)
  Receive Date: 20140321
  Receipt Date: 20140410
  Transmission Date: 20141212
  Serious: Yes (Hospitalization)
  Sender: FDA-Public Use
  Company Number: US-GLAXOSMITHKLINE-A1065917A

PATIENT
  Age: 60 Year
  Sex: Male
  Weight: 83.7 kg

DRUGS (2)
  1. PAZOPANIB [Suspect]
     Indication: CHOLANGIOCARCINOMA
     Dosage: 800MG PER DAY
     Route: 048
     Dates: start: 20140304
  2. TRAMETINIB [Suspect]
     Indication: CHOLANGIOCARCINOMA
     Dosage: 2MG PER DAY
     Route: 048
     Dates: start: 20140304

REACTIONS (2)
  - Convulsion [Unknown]
  - Rectal haemorrhage [Unknown]
